FAERS Safety Report 13027415 (Version 2)
Quarter: 2017Q1

REPORT INFORMATION
  Report Type: Spontaneous
  Country: US (occurrence: US)
  Receive Date: 20161214
  Receipt Date: 20170306
  Transmission Date: 20170428
  Serious: Yes (Other)
  Sender: FDA-Public Use
  Company Number: US-BRISTOL-MYERS SQUIBB COMPANY-BMS-2016-104522

PATIENT
  Sex: Female

DRUGS (3)
  1. SPRYCEL [Suspect]
     Active Substance: DASATINIB
     Indication: CHRONIC MYELOID LEUKAEMIA
     Dosage: 100 MG, QD
     Route: 065
     Dates: start: 20151031, end: 20170221
  2. POTASSIUM [Concomitant]
     Active Substance: POTASSIUM
     Indication: PRODUCT USED FOR UNKNOWN INDICATION
     Route: 065
  3. FOLIC ACID. [Concomitant]
     Active Substance: FOLIC ACID
     Indication: PRODUCT USED FOR UNKNOWN INDICATION
     Route: 065

REACTIONS (14)
  - Haemorrhage [Unknown]
  - Fluid retention [Unknown]
  - Myalgia [Unknown]
  - Fatigue [Unknown]
  - Generalised oedema [Unknown]
  - Skin exfoliation [Unknown]
  - Nephrolithiasis [Unknown]
  - Pain [Unknown]
  - Nausea [Unknown]
  - Eating disorder [Unknown]
  - Skin burning sensation [Unknown]
  - Bone pain [Unknown]
  - Stomatitis [Unknown]
  - Headache [Unknown]
